FAERS Safety Report 7546666-9 (Version None)
Quarter: 2011Q2

REPORT INFORMATION
  Report Type: 
  Country: None (occurrence: None)
  Receive Date: 20110614
  Receipt Date: 20110603
  Transmission Date: 20111010
  Serious: Yes (Other)
  Sender: FDA-Public Use
  Company Number: BR-SANOFI-AVENTIS-2011SA035317

PATIENT
  Sex: Female

DRUGS (2)
  1. APIDRA [Suspect]
     Dosage: ACCORDING TO GLYCEMIA
     Route: 058
     Dates: start: 20110101
  2. LANTUS [Suspect]
     Route: 058
     Dates: start: 20010101

REACTIONS (1)
  - METASTASIS [None]
